FAERS Safety Report 15387900 (Version 4)
Quarter: 2020Q2

REPORT INFORMATION
  Report Type: Report from Study
  Country: None (occurrence: US)
  Receive Date: 20180914
  Receipt Date: 20200405
  Transmission Date: 20200713
  Serious: Yes (Hospitalization, Other)
  Sender: FDA-Public Use
  Company Number: US-ABBVIE-18K-163-2309897-00

PATIENT
  Age: 26 Year
  Sex: Female

DRUGS (3)
  1. HUMIRA [Suspect]
     Active Substance: ADALIMUMAB
     Route: 058
  2. HUMIRA [Suspect]
     Active Substance: ADALIMUMAB
     Indication: CROHN^S DISEASE
     Route: 058
     Dates: start: 201701
  3. LEXAPRO [Concomitant]
     Active Substance: ESCITALOPRAM OXALATE
     Indication: ANXIETY
     Dates: start: 2019

REACTIONS (9)
  - Haemorrhage [Recovering/Resolving]
  - Abdominal discomfort [Unknown]
  - Therapeutic response shortened [Recovering/Resolving]
  - Abdominal pain upper [Recovered/Resolved]
  - Exposure during pregnancy [Unknown]
  - Abdominal pain upper [Unknown]
  - Food intolerance [Unknown]
  - Abortion spontaneous [Unknown]
  - Stress [Unknown]

NARRATIVE: CASE EVENT DATE: 201805
